FAERS Safety Report 4496874-9 (Version None)
Quarter: 2004Q4

REPORT INFORMATION
  Report Type: 
  Country: None (occurrence: None)
  Receive Date: 20041109
  Receipt Date: 20041028
  Transmission Date: 20050328
  Serious: Yes (Other)
  Sender: FDA-Public Use
  Company Number: GBWYE163101NOV04

PATIENT
  Age: 32 Year
  Sex: Female
  Weight: 58.9 kg

DRUGS (1)
  1. ENBREL [Suspect]
     Indication: DRUG USE FOR UNKNOWN INDICATION
     Route: 058
     Dates: start: 20040401

REACTIONS (2)
  - DEPRESSION [None]
  - SUICIDAL IDEATION [None]
